FAERS Safety Report 9409630 (Version 2)
Quarter: 2013Q3

REPORT INFORMATION
  Report Type: Report from Study
  Country: BR (occurrence: BR)
  Receive Date: 20130719
  Receipt Date: 20130926
  Transmission Date: 20140515
  Serious: Yes (Hospitalization, Other)
  Sender: FDA-Public Use
  Company Number: PHHY2013BR075999

PATIENT
  Sex: Female

DRUGS (12)
  1. DIOVAN [Suspect]
     Indication: HYPERTENSION
     Dosage: 2 DF,  (2 TABLET DAILY)
  2. DIOVAN [Suspect]
     Dosage: 3 DF, (3 TABLET DAILY)
     Route: 048
  3. FORASEQ [Suspect]
     Indication: ASTHMA
     Dosage: 1 DF, DAILY
     Dates: start: 2010, end: 2012
  4. FORASEQ [Suspect]
     Dosage: 1 DF, DAILY
     Dates: start: 2013
  5. ARADOIS [Suspect]
     Indication: HYPERTENSION
     Dosage: UNK UKN, UNK
  6. ATENSINA [Concomitant]
     Indication: HYPERTENSION
     Dosage: 0.200 MG, (2 TABLET DAILY)
     Route: 048
  7. LOSARTAN [Concomitant]
     Indication: HYPERTENSION
     Dosage: 50 MG, (2 TABLETSDAILY)
     Route: 048
  8. BETAMIDE [Concomitant]
     Indication: DIABETES MELLITUS
     Dosage: 50 MG, (1 TABLET DAILY)
     Route: 048
  9. AAS [Concomitant]
     Indication: ANGIOPATHY
     Dosage: 2 DF, DAILY
     Route: 048
  10. GLIFAGE [Concomitant]
     Indication: DIABETES MELLITUS
     Dosage: 850 MG, (2 TABLET DAILY)
     Route: 048
  11. SIMVASTATIN [Concomitant]
     Indication: BLOOD GLUCOSE ABNORMAL
     Dosage: 40 MG, (1 TABLET DAILY)
     Route: 048
  12. HYDROCHLOROTHIAZIDE [Concomitant]
     Indication: POLYURIA
     Dosage: 50 MG, (1 TABLET DAILY)
     Route: 048

REACTIONS (3)
  - Pulmonary oedema [Recovered/Resolved]
  - Asthma [Recovered/Resolved]
  - Anaemia [Unknown]
